FAERS Safety Report 20764383 (Version 2)
Quarter: 2022Q2

REPORT INFORMATION
  Report Type: Spontaneous
  Country: TH (occurrence: TH)
  Receive Date: 20220428
  Receipt Date: 20220510
  Transmission Date: 20220721
  Serious: Yes (Other)
  Sender: FDA-Public Use
  Company Number: TH-TEVA-2022-TH-2030154

PATIENT
  Age: 37 Year
  Sex: Male

DRUGS (10)
  1. DOXORUBICIN [Suspect]
     Active Substance: DOXORUBICIN
     Indication: Neuroendocrine carcinoma metastatic
     Dosage: SECOND-LINE PALLIATIVE CHEMOTHERAPY REGIMEN
     Route: 065
  2. DOXORUBICIN [Suspect]
     Active Substance: DOXORUBICIN
     Indication: Testis cancer
  3. ETOPOSIDE [Suspect]
     Active Substance: ETOPOSIDE
     Indication: Neuroendocrine carcinoma metastatic
     Dosage: PART OF 3-WEEK CYCLE OF COMBINED CHEMOTHERAPY
     Route: 065
  4. ETOPOSIDE [Suspect]
     Active Substance: ETOPOSIDE
     Indication: Testis cancer
  5. CISPLATIN [Suspect]
     Active Substance: CISPLATIN
     Indication: Neuroendocrine carcinoma metastatic
     Dosage: PALLIATIVE CHEMOTHERAPY WITH WEEKLY CISPLATIN
     Route: 065
  6. CISPLATIN [Suspect]
     Active Substance: CISPLATIN
     Indication: Testis cancer
     Dosage: PART OF 3-WEEK CYCLE OF COMBINED CHEMOTHERAPY
     Route: 065
  7. CYCLOPHOSPHAMIDE [Suspect]
     Active Substance: CYCLOPHOSPHAMIDE
     Indication: Neuroendocrine carcinoma metastatic
     Dosage: SECOND-LINE PALLIATIVE CHEMOTHERAPY REGIMEN
     Route: 065
  8. CYCLOPHOSPHAMIDE [Suspect]
     Active Substance: CYCLOPHOSPHAMIDE
     Indication: Testis cancer
  9. VINCRISTINE [Suspect]
     Active Substance: VINCRISTINE
     Indication: Neuroendocrine carcinoma metastatic
     Dosage: SECOND-LINE PALLIATIVE CHEMOTHERAPY REGIMEN
     Route: 065
  10. VINCRISTINE [Suspect]
     Active Substance: VINCRISTINE
     Indication: Testis cancer

REACTIONS (3)
  - Pancytopenia [Unknown]
  - Sepsis [Unknown]
  - Drug ineffective [Unknown]
